FAERS Safety Report 11120295 (Version 2)
Quarter: 2015Q2

REPORT INFORMATION
  Report Type: Spontaneous
  Country: AR (occurrence: AR)
  Receive Date: 20150518
  Receipt Date: 20150604
  Transmission Date: 20150821
  Serious: Yes (Other)
  Sender: FDA-Public Use
  Company Number: CHPA2015AR006268

PATIENT
  Age: 29 Year
  Sex: Male

DRUGS (2)
  1. NICOTINELL [Suspect]
     Active Substance: NICOTINE
     Dosage: 2 MG, UNK, FREQ: 20-24 DAILY
     Route: 065
     Dates: end: 201504
  2. NICOTINELL [Suspect]
     Active Substance: NICOTINE
     Indication: SMOKING CESSATION THERAPY
     Dosage: 4 MG, UNK, FREQ: 20-24 DAILY
     Route: 065
     Dates: end: 201504

REACTIONS (3)
  - Memory impairment [Recovering/Resolving]
  - Drug dependence [Unknown]
  - Anxiety [Recovering/Resolving]
